FAERS Safety Report 7328657-6 (Version None)
Quarter: 2011Q1

REPORT INFORMATION
  Report Type: 
  Country: None (occurrence: None)
  Receive Date: 20110303
  Receipt Date: 20110119
  Transmission Date: 20110831
  Serious: Yes (Other)
  Sender: FDA-Public Use
  Company Number: PHHO2011US01435

PATIENT
  Sex: Female
  Weight: 97.5 kg

DRUGS (2)
  1. GLEEVEC [Suspect]
     Indication: SYSTEMIC SCLEROSIS
     Dosage: 400 MG, QD
     Route: 048
     Dates: start: 20090608, end: 20110104
  2. PROTON PUMP INHIBITORS [Concomitant]

REACTIONS (22)
  - DISEASE PROGRESSION [None]
  - OEDEMA PERIPHERAL [None]
  - ARTHRALGIA [None]
  - MYALGIA [None]
  - DIARRHOEA [None]
  - PAIN [None]
  - ODYNOPHAGIA [None]
  - FATIGUE [None]
  - WEIGHT DECREASED [None]
  - MUSCULOSKELETAL STIFFNESS [None]
  - OESOPHAGOGASTRIC FUNDOPLASTY [None]
  - FAECAL INCONTINENCE [None]
  - SKIN HYPERPIGMENTATION [None]
  - SKIN HYPOPIGMENTATION [None]
  - DYSPNOEA [None]
  - SKIN DISORDER [None]
  - MYOSITIS [None]
  - CHANGE OF BOWEL HABIT [None]
  - GASTROOESOPHAGEAL REFLUX DISEASE [None]
  - DYSPHAGIA [None]
  - ULCER [None]
  - ARTHRITIS [None]
